FAERS Safety Report 18607156 (Version 1)
Quarter: 2020Q4

REPORT INFORMATION
  Report Type: Report from Study
  Country: BR (occurrence: BR)
  Receive Date: 20201211
  Receipt Date: 20201211
  Transmission Date: 20210114
  Serious: Yes (Other)
  Sender: FDA-Public Use
  Company Number: BR-TAKEDA-BR202033889

PATIENT
  Age: 10 Year
  Sex: Male
  Weight: 40 kg

DRUGS (3)
  1. IDURSULFASE [Suspect]
     Active Substance: IDURSULFASE
     Indication: MUCOPOLYSACCHARIDOSIS II
     Dosage: 2 VIALS, 1/WEEK
     Route: 042
     Dates: start: 20200916
  2. IDURSULFASE [Suspect]
     Active Substance: IDURSULFASE
     Dosage: UNK, 1/WEEK
     Route: 042
     Dates: start: 202009
  3. HUNTERASE [Concomitant]
     Indication: PRODUCT USED FOR UNKNOWN INDICATION

REACTIONS (4)
  - Suspected COVID-19 [Unknown]
  - Product dose omission issue [Unknown]
  - Underdose [Unknown]
  - Medication error [Unknown]

NARRATIVE: CASE EVENT DATE: 20201029
